FAERS Safety Report 16566975 (Version 2)
Quarter: 2019Q3

REPORT INFORMATION
  Report Type: Spontaneous
  Country: TW (occurrence: TW)
  Receive Date: 20190712
  Receipt Date: 20190926
  Transmission Date: 20191004
  Serious: Yes (Hospitalization)
  Sender: FDA-Public Use
  Company Number: TW-PFIZER INC-2018417754

PATIENT
  Age: 76 Year
  Sex: Male

DRUGS (6)
  1. SUTENT [Suspect]
     Active Substance: SUNITINIB MALATE
     Dosage: 12.5 MG, CYCLIC (BID, FOUR WEEKS ON AND TWO WEEK OFF)
     Route: 048
     Dates: start: 2018, end: 2018
  2. SUTENT [Suspect]
     Active Substance: SUNITINIB MALATE
     Dosage: 12.5 MG, CYCLIC (BID 4 WEEKS ON/2 WEEKS OFF)
     Route: 048
  3. SUTENT [Suspect]
     Active Substance: SUNITINIB MALATE
     Dosage: 12.5 MG, CYCLIC (BID, TWO WEEKS ON AND ONE WEEK OFF)
     Route: 048
     Dates: start: 201902, end: 2019
  4. SUTENT [Suspect]
     Active Substance: SUNITINIB MALATE
     Indication: RENAL CELL CARCINOMA
     Dosage: 25 MG, CYCLIC (DAILY, QD, FOUR WEEKS ON AND TWO WEEK OFF)
     Route: 048
     Dates: start: 20180919, end: 2018
  5. SUTENT [Suspect]
     Active Substance: SUNITINIB MALATE
     Dosage: 12.5 MG, CYCLIC (BID, 2 WEEKS ON AND 2 WEEKS OFF)
     Route: 048
  6. SUTENT [Suspect]
     Active Substance: SUNITINIB MALATE
     Dosage: 1 DF, 2X/DAY (12.5MG, BID CONTINUOUSLY WITH NON-STOP)
     Route: 048
     Dates: start: 20181128, end: 20181213

REACTIONS (11)
  - Decreased appetite [Not Recovered/Not Resolved]
  - Oral pain [Recovering/Resolving]
  - Haematuria [Unknown]
  - Fungal infection [Unknown]
  - Oedema peripheral [Not Recovered/Not Resolved]
  - Blood pressure increased [Recovered/Resolved]
  - Diarrhoea [Recovered/Resolved]
  - Palmar-plantar erythrodysaesthesia syndrome [Not Recovered/Not Resolved]
  - Acne [Recovering/Resolving]
  - Mouth ulceration [Recovering/Resolving]
  - Abdominal distension [Not Recovered/Not Resolved]

NARRATIVE: CASE EVENT DATE: 2018
